FAERS Safety Report 6216433-7 (Version None)
Quarter: 2009Q2

REPORT INFORMATION
  Report Type: 
  Country: None (occurrence: None)
  Receive Date: 20090605
  Receipt Date: 20090604
  Transmission Date: 20091009
  Serious: Yes (Death)
  Sender: FDA-Public Use
  Company Number: AU-B.I. PHARMACEUTICALS,INC./RIDGEFIELD-2009-AU-00253AU

PATIENT
  Age: 52 Year
  Sex: Male

DRUGS (1)
  1. MOBIC [Suspect]
     Dates: start: 20070101

REACTIONS (1)
  - GASTRIC ULCER [None]
